FAERS Safety Report 21627626 (Version 14)
Quarter: 2025Q1

REPORT INFORMATION
  Report Type: Spontaneous
  Country: US (occurrence: US)
  Receive Date: 20221122
  Receipt Date: 20250121
  Transmission Date: 20250409
  Serious: No
  Sender: PFIZER
  Company Number: US-PFIZER INC-202200298750

PATIENT
  Age: 71 Year
  Sex: Female
  Weight: 85.73 kg

DRUGS (7)
  1. PREMARIN [Suspect]
     Active Substance: ESTROGENS, CONJUGATED
     Indication: Menopause
     Route: 067
     Dates: start: 20220214
  2. PREMARIN [Suspect]
     Active Substance: ESTROGENS, CONJUGATED
     Route: 067
     Dates: start: 20220523
  3. PREMARIN [Suspect]
     Active Substance: ESTROGENS, CONJUGATED
     Route: 067
     Dates: start: 20221114
  4. PREMARIN [Suspect]
     Active Substance: ESTROGENS, CONJUGATED
     Indication: Menopause
  5. PREMARIN [Suspect]
     Active Substance: ESTROGENS, CONJUGATED
     Dosage: 0.3 MG, DAILY (1 TABLET BY MOUTH DAILY)
     Route: 048
     Dates: start: 20220523
  6. PREMARIN [Suspect]
     Active Substance: ESTROGENS, CONJUGATED
     Dosage: 0.3 MG, DAILY (1 TABLET BY MOUTH DAILY)
     Route: 048
     Dates: start: 20231206
  7. PREMARIN [Suspect]
     Active Substance: ESTROGENS, CONJUGATED
     Dosage: 0.3 MG, DAILY (0.3 MG; TAKES 1 TABLET A DAY)

REACTIONS (2)
  - COVID-19 [Unknown]
  - Off label use [Unknown]

NARRATIVE: CASE EVENT DATE: 20220214
